FAERS Safety Report 8242243-5 (Version None)
Quarter: 2012Q1

REPORT INFORMATION
  Report Type: 
  Country: None (occurrence: None)
  Receive Date: 20120329
  Receipt Date: 20120314
  Transmission Date: 20120608
  Serious: No
  Sender: FDA-Public Use
  Company Number: US-ENDO PHARMACEUTICALS INC.-OPER20120397

PATIENT
  Sex: Male
  Weight: 99.88 kg

DRUGS (4)
  1. MORPHINE SULFATE [Suspect]
     Indication: MUSCULOSKELETAL PAIN
     Route: 048
     Dates: start: 20120303
  2. OPANA [Suspect]
     Indication: MUSCULOSKELETAL PAIN
     Route: 048
     Dates: start: 20100801, end: 20120228
  3. OPANA ER [Suspect]
     Indication: MUSCULOSKELETAL PAIN
     Route: 048
     Dates: start: 20100801, end: 20120228
  4. MORPHINE SULFATE [Suspect]
     Indication: MUSCULOSKELETAL PAIN
     Route: 048
     Dates: start: 20120303

REACTIONS (6)
  - SOMNOLENCE [None]
  - WITHDRAWAL SYNDROME [None]
  - OEDEMA PERIPHERAL [None]
  - MUSCLE SPASMS [None]
  - DRUG INEFFECTIVE [None]
  - CONSTIPATION [None]
